FAERS Safety Report 6560648-5 (Version None)
Quarter: 2010Q1

REPORT INFORMATION
  Report Type: 
  Country: None (occurrence: None)
  Receive Date: 20100129
  Receipt Date: 20050323
  Transmission Date: 20100710
  Serious: No
  Sender: FDA-Public Use
  Company Number: US-ALLERGAN-200502373

PATIENT
  Age: 11 Year
  Sex: Female
  Weight: 31.8 kg

DRUGS (2)
  1. BOTOX [Suspect]
     Indication: MIGRAINE
     Dosage: NECK, UPPER BACK
     Route: 030
  2. KEPPRA [Concomitant]
     Indication: MIGRAINE
     Dosage: 1750MG, QD
     Route: 048

REACTIONS (1)
  - MUSCULAR WEAKNESS [None]
